FAERS Safety Report 11049160 (Version 3)
Quarter: 2019Q4

REPORT INFORMATION
  Report Type: Spontaneous
  Country: US (occurrence: US)
  Receive Date: 20150420
  Receipt Date: 20191212
  Transmission Date: 20200122
  Serious: No
  Sender: FDA-Public Use
  Company Number: US-PFIZER INC-2015129457

PATIENT
  Age: 50 Year
  Sex: Female
  Weight: 83 kg

DRUGS (1)
  1. LYRICA [Suspect]
     Active Substance: PREGABALIN
     Indication: NEUROPATHY PERIPHERAL
     Dosage: 2 DF, 2X/DAY (TWO IN MORNING TWO AT NIGHT)
     Route: 048

REACTIONS (3)
  - Migraine [Unknown]
  - Intentional product use issue [Unknown]
  - Facial pain [Not Recovered/Not Resolved]
